FAERS Safety Report 7644303-6 (Version None)
Quarter: 2011Q3

REPORT INFORMATION
  Report Type: 
  Country: None (occurrence: None)
  Receive Date: 20110729
  Receipt Date: 20110715
  Transmission Date: 20111222
  Serious: Yes (Hospitalization, Other)
  Sender: FDA-Public Use
  Company Number: PHHY2010JP58071

PATIENT
  Age: 79 Year
  Sex: Male

DRUGS (5)
  1. GLEEVEC [Suspect]
     Indication: CHRONIC MYELOID LEUKAEMIA
     Dosage: 300 MG, UNK
     Route: 048
  2. NIFEDIPINE [Concomitant]
     Dosage: 40 MG, BID
  3. GLEEVEC [Suspect]
     Dosage: 400 MG, UNK
     Route: 048
  4. CANDESARTAN CILEXETIL [Concomitant]
     Dosage: 8 MG, QD
  5. FUROSEMIDE [Concomitant]
     Dosage: 20 MG, QD

REACTIONS (21)
  - BRONCHIAL POLYP [None]
  - RESPIRATORY FAILURE [None]
  - PNEUMONITIS [None]
  - ALVEOLITIS [None]
  - DYSPNOEA [None]
  - CELL MARKER INCREASED [None]
  - ANTINUCLEAR ANTIBODY INCREASED [None]
  - PULMONARY GRANULOMA [None]
  - CD4/CD8 RATIO DECREASED [None]
  - MALAISE [None]
  - LUNG DISORDER [None]
  - PULMONARY EOSINOPHILIA [None]
  - PULMONARY MASS [None]
  - PYREXIA [None]
  - RALES [None]
  - COUGH [None]
  - COMPUTERISED TOMOGRAM ABNORMAL [None]
  - LUNG INFILTRATION [None]
  - SURFACTANT PROTEIN INCREASED [None]
  - ANAEMIA [None]
  - ANTI-SS-A ANTIBODY POSITIVE [None]
